FAERS Safety Report 17646853 (Version 1)
Quarter: 2020Q2

REPORT INFORMATION
  Report Type: Report from Study
  Country: None (occurrence: US)
  Receive Date: 20200408
  Receipt Date: 20200408
  Transmission Date: 20200713
  Serious: No
  Sender: FDA-Public Use
  Company Number: US-BIOVITRUM-2019US1589

PATIENT
  Age: 76 Year
  Sex: Female

DRUGS (11)
  1. OMEPRAZOLE. [Concomitant]
     Active Substance: OMEPRAZOLE
  2. TYLENOL [Concomitant]
     Active Substance: ACETAMINOPHEN
  3. MULTIVITAMIN [Concomitant]
     Active Substance: VITAMINS
  4. ECHINACEA [Concomitant]
     Active Substance: ECHINACEA, UNSPECIFIED
  5. FLECAINIDE [Concomitant]
     Active Substance: FLECAINIDE
  6. FUROSEMIDE. [Concomitant]
     Active Substance: FUROSEMIDE
  7. KINERET [Suspect]
     Active Substance: ANAKINRA
     Indication: PRODUCT USED FOR UNKNOWN INDICATION
     Route: 058
     Dates: start: 20190601
  8. ELIQUIS [Concomitant]
     Active Substance: APIXABAN
  9. GLIMEPIRIDE. [Concomitant]
     Active Substance: GLIMEPIRIDE
  10. BYSTOLIC [Concomitant]
     Active Substance: NEBIVOLOL HYDROCHLORIDE
  11. PROBIOTIC [Concomitant]
     Active Substance: PROBIOTICS NOS

REACTIONS (10)
  - Abdominal discomfort [Unknown]
  - Injection site pain [Unknown]
  - Injection site inflammation [Unknown]
  - Headache [Unknown]
  - Injection site induration [Unknown]
  - Injection site bruising [Unknown]
  - Injection site warmth [Unknown]
  - Injection site swelling [Unknown]
  - Rash macular [Recovered/Resolved]
  - Injection site erythema [Unknown]

NARRATIVE: CASE EVENT DATE: 201906
